FAERS Safety Report 9258137 (Version 1)
Quarter: 2013Q2

REPORT INFORMATION
  Report Type: Spontaneous
  Country: FR (occurrence: FR)
  Receive Date: 20130426
  Receipt Date: 20130426
  Transmission Date: 20140414
  Serious: Yes (Hospitalization)
  Sender: FDA-Public Use
  Company Number: FR-BRISTOL-MYERS SQUIBB COMPANY-18808352

PATIENT
  Age: 72 Year
  Sex: Male

DRUGS (2)
  1. COUMADINE [Suspect]
     Indication: ATRIAL FIBRILLATION
     Dosage: INTER: 14-JAN-2013.1DF:0.5 TABLET ON EVEN DAYS AND 1 TABLET ON ODD DAYS ?COUMADINE 2 MG TABS
  2. PLAVIX [Suspect]
     Route: 048

REACTIONS (5)
  - Melaena [Recovered/Resolved]
  - Haematemesis [Recovered/Resolved]
  - Dieulafoy^s vascular malformation [Recovered/Resolved]
  - Gastritis atrophic [Recovered/Resolved]
  - International normalised ratio increased [Recovered/Resolved]
